FAERS Safety Report 21049510 (Version 1)
Quarter: 2022Q3

REPORT INFORMATION
  Report Type: Spontaneous
  Country: KW (occurrence: KW)
  Receive Date: 20220706
  Receipt Date: 20220706
  Transmission Date: 20221027
  Serious: Yes (Hospitalization, Other)
  Sender: FDA-Public Use
  Company Number: KW-ANIPHARMA-2022-KW-000007

PATIENT
  Age: 15 Year
  Sex: Female

DRUGS (1)
  1. LITHIUM [Suspect]
     Active Substance: LITHIUM
     Indication: Bipolar disorder
     Dosage: 1200 MG EVERY NIGHT

REACTIONS (2)
  - Paroxysmal perceptual alteration [Recovered/Resolved]
  - Torticollis [Recovered/Resolved]
